FAERS Safety Report 24284047 (Version 1)
Quarter: 2024Q3

REPORT INFORMATION
  Report Type: Spontaneous
  Country: GB (occurrence: GB)
  Receive Date: 20240905
  Receipt Date: 20240905
  Transmission Date: 20241017
  Serious: Yes (Death)
  Sender: NOVO NORDISK
  Company Number: GB-NOVOPROD-1275656

PATIENT
  Age: 63 Year
  Sex: Male

DRUGS (1)
  1. NORDITROPIN [Suspect]
     Active Substance: SOMATROPIN
     Indication: Product used for unknown indication
     Dosage: 0.4 MG, QD

REACTIONS (1)
  - Death [Fatal]
